FAERS Safety Report 25120576 (Version 1)
Quarter: 2025Q1

REPORT INFORMATION
  Report Type: Spontaneous
  Country: JP (occurrence: JP)
  Receive Date: 20250325
  Receipt Date: 20250325
  Transmission Date: 20250408
  Serious: Yes (Other)
  Sender: UCB
  Company Number: JP-UCBJ-CD202503610UCBPHAPROD

PATIENT
  Age: 30 Year
  Sex: Female

DRUGS (5)
  1. BRIVIACT [Suspect]
     Active Substance: BRIVARACETAM
     Indication: Partial seizures
     Dosage: 150 MILLIGRAM, ONCE DAILY (QD)
     Route: 048
     Dates: start: 20250121
  2. BRIVIACT [Suspect]
     Active Substance: BRIVARACETAM
     Dosage: 200 MILLIGRAM, ONCE DAILY (QD)
     Route: 048
  3. TOPIRAMATE [Suspect]
     Active Substance: TOPIRAMATE
     Indication: Epilepsy
     Dosage: 100 GRAM, ONCE DAILY (QD)
     Route: 048
  4. PHENYTOIN SODIUM [Concomitant]
     Active Substance: PHENYTOIN SODIUM
     Indication: Epilepsy
     Dosage: 30 MILLIGRAM, ONCE DAILY (QD)
     Route: 048
  5. LAMOTRIGINE [Concomitant]
     Active Substance: LAMOTRIGINE
     Indication: Epilepsy
     Dosage: 1000 MILLIGRAM, ONCE DAILY (QD)
     Route: 048

REACTIONS (2)
  - Status epilepticus [Unknown]
  - Off label use [Unknown]

NARRATIVE: CASE EVENT DATE: 20250121
